FAERS Safety Report 5469774-5 (Version None)
Quarter: 2007Q3

REPORT INFORMATION
  Report Type: 
  Country: None (occurrence: None)
  Receive Date: 20070927
  Receipt Date: 20070411
  Transmission Date: 20080115
  Serious: No
  Sender: FDA-Public Use
  Company Number: US-AMGEN-US219049

PATIENT
  Age: 66 Year
  Sex: Female

DRUGS (8)
  1. NEUPOGEN [Suspect]
     Indication: CHEMOTHERAPY
     Route: 042
  2. DOXORUBICIN HYDROCHLORIDE [Concomitant]
     Route: 065
  3. PACLITAXEL [Concomitant]
     Route: 065
  4. GEMCITABINE HCL [Concomitant]
     Route: 065
  5. PAMIDRONATE DISODIUM [Concomitant]
     Route: 065
  6. WARFARIN [Concomitant]
  7. CALCIUM [Concomitant]
  8. VITAMIN CAP [Concomitant]
     Route: 065

REACTIONS (1)
  - KERATITIS [None]
